FAERS Safety Report 5291889-5 (Version None)
Quarter: 2007Q2

REPORT INFORMATION
  Report Type: 
  Country: None (occurrence: None)
  Receive Date: 20070406
  Receipt Date: 20070406
  Transmission Date: 20071010
  Serious: Yes (Life-Threatening)
  Sender: FDA-Public Use
  Company Number: None

PATIENT
  Age: 40 Year
  Sex: Female
  Weight: 72.1219 kg

DRUGS (2)
  1. ENBREL [Suspect]
     Indication: DRUG THERAPY
     Dosage: 50 WEEKLY SQ
     Route: 058
     Dates: start: 19991201, end: 20070101
  2. METHOTREXATE [Concomitant]

REACTIONS (1)
  - CLEAR CELL CARCINOMA OF THE KIDNEY [None]
